FAERS Safety Report 5775048-5 (Version None)
Quarter: 2008Q2

REPORT INFORMATION
  Report Type: 
  Country: None (occurrence: None)
  Receive Date: 20080617
  Receipt Date: 20080617
  Transmission Date: 20081010
  Serious: No
  Sender: FDA-Public Use
  Company Number: None

PATIENT
  Age: 78 Year
  Sex: Female

DRUGS (9)
  1. HEPARIN [Suspect]
     Indication: PROPHYLAXIS
     Dosage: INFUSION IV VAR.
     Route: 042
     Dates: start: 20080428, end: 20080430
  2. HEPARIN [Suspect]
     Indication: PROPHYLAXIS
     Dosage: INFUSION IV VAR.
     Route: 042
     Dates: start: 20080505, end: 20080508
  3. ASPIRIN [Concomitant]
  4. LASIX [Concomitant]
  5. ZOCOR [Concomitant]
  6. COLACE [Concomitant]
  7. AMIDARONE [Concomitant]
  8. WARFARIN SODIUM [Concomitant]
  9. ATENOLOL [Concomitant]

REACTIONS (1)
  - HEPARIN-INDUCED THROMBOCYTOPENIA [None]
